FAERS Safety Report 6412513-1 (Version None)
Quarter: 2009Q4

REPORT INFORMATION
  Report Type: 
  Country: None (occurrence: None)
  Receive Date: 20091023
  Receipt Date: 20090603
  Transmission Date: 20100525
  Serious: No
  Sender: FDA-Public Use
  Company Number: US-BRISTOL-MYERS SQUIBB COMPANY-14650089

PATIENT
  Sex: Male

DRUGS (1)
  1. KENALOG-40 [Suspect]
     Dosage: INJECTABLE SUSPENSION.USP

REACTIONS (2)
  - CONTUSION [None]
  - HYPERTENSION [None]
